FAERS Safety Report 7413623-2 (Version None)
Quarter: 2011Q2

REPORT INFORMATION
  Report Type: 
  Country: None (occurrence: None)
  Receive Date: 20110413
  Receipt Date: 20110401
  Transmission Date: 20111010
  Serious: Yes (Hospitalization)
  Sender: FDA-Public Use
  Company Number: JP-MEDIMMUNE-MEDI-0012976

PATIENT
  Sex: Female
  Weight: 2.5 kg

DRUGS (1)
  1. SYNAGIS [Suspect]
     Route: 030
     Dates: start: 20110314, end: 20110314

REACTIONS (3)
  - CYTOGENETIC ABNORMALITY [None]
  - POOR SUCKING REFLEX [None]
  - DECREASED ACTIVITY [None]
